FAERS Safety Report 26155728 (Version 1)
Quarter: 2025Q4

REPORT INFORMATION
  Report Type: Spontaneous
  Country: US (occurrence: US)
  Receive Date: 20251215
  Receipt Date: 20251215
  Transmission Date: 20260117
  Serious: No
  Sender: ALKEM
  Company Number: None

PATIENT
  Age: 36 Year
  Sex: Male

DRUGS (6)
  1. SIROLIMUS [Suspect]
     Active Substance: SIROLIMUS
     Indication: Immunosuppressant drug therapy
     Dosage: UNK (MAINTENANCE)
     Route: 065
  2. TACROLIMUS [Suspect]
     Active Substance: TACROLIMUS
     Indication: Immunosuppressant drug therapy
     Dosage: UNK (MAINTENANCE)
     Route: 065
  3. DACLIZUMAB [Suspect]
     Active Substance: DACLIZUMAB
     Indication: Immunosuppressant drug therapy
     Dosage: UNK (INDUCTION)
     Route: 065
  4. INSULIN NOS [Concomitant]
     Active Substance: INSULIN NOS
     Indication: Product used for unknown indication
     Dosage: 0.75 INTERNATIONAL UNIT/KILOGRAM, QD
     Route: 065
  5. INSULIN NOS [Concomitant]
     Active Substance: INSULIN NOS
     Dosage: 0.96 INTERNATIONAL UNIT/KILOGRAM, QD
     Route: 065
  6. SEMAGLUTIDE [Concomitant]
     Active Substance: SEMAGLUTIDE
     Indication: Product used for unknown indication
     Dosage: UNK
     Route: 065

REACTIONS (1)
  - Respiratory tract infection [Unknown]
